APPROVED DRUG PRODUCT: RANITIDINE HYDROCHLORIDE
Active Ingredient: RANITIDINE HYDROCHLORIDE
Strength: EQ 150MG BASE
Dosage Form/Route: TABLET;ORAL
Application: A078192 | Product #001
Applicant: DR REDDYS LABORATORIES LTD
Approved: Aug 31, 2007 | RLD: No | RS: No | Type: OTC